FAERS Safety Report 22253188 (Version 1)
Quarter: 2023Q2

REPORT INFORMATION
  Report Type: Spontaneous
  Country: FR (occurrence: FR)
  Receive Date: 20230426
  Receipt Date: 20230426
  Transmission Date: 20230721
  Serious: Yes (Hospitalization)
  Sender: FDA-Public Use
  Company Number: None

PATIENT
  Age: 64 Year
  Sex: Female
  Weight: 120 kg

DRUGS (2)
  1. VALSARTAN [Interacting]
     Active Substance: VALSARTAN
     Indication: Hypertension
     Route: 065
  2. TERALITHE [Interacting]
     Active Substance: LITHIUM CARBONATE
     Indication: Bipolar disorder
     Dosage: TERALITHE LP 400 MG, PROLONGED-RELEASE SCORED TABLET,
     Route: 065
     Dates: start: 2019, end: 202303

REACTIONS (4)
  - Antipsychotic drug level increased [Recovered/Resolved]
  - Motor dysfunction [Recovering/Resolving]
  - Pain in extremity [Recovering/Resolving]
  - Drug interaction [Unknown]

NARRATIVE: CASE EVENT DATE: 20230309
